FAERS Safety Report 8343816-1 (Version None)
Quarter: 2012Q2

REPORT INFORMATION
  Report Type: 
  Country: None (occurrence: None)
  Receive Date: 20120508
  Receipt Date: 20110830
  Transmission Date: 20120825
  Serious: Yes (Hospitalization)
  Sender: FDA-Public Use
  Company Number: US-BAYER-201022800NA

PATIENT
  Age: 22 Year
  Sex: Female
  Weight: 79.365 kg

DRUGS (5)
  1. IBUPROFEN (ADVIL) [Concomitant]
     Indication: HEADACHE
  2. IBUPROFEN (ADVIL) [Concomitant]
     Indication: PYREXIA
  3. PROTONIX [Concomitant]
     Indication: GASTROOESOPHAGEAL REFLUX DISEASE
     Dosage: UNK
     Route: 048
     Dates: end: 20060101
  4. YASMIN [Suspect]
     Indication: ORAL CONTRACEPTION
     Dosage: UNK
     Route: 048
     Dates: start: 20040101, end: 20050615
  5. DROSPIRENONE AND ETHINYL ESTRADIOL [Suspect]
     Indication: ORAL CONTRACEPTION
     Dosage: UNK
     Dates: start: 20080101, end: 20090615

REACTIONS (7)
  - PANCREATIC PSEUDOCYST [None]
  - PANCREATITIS [None]
  - VOMITING [None]
  - CHOLELITHIASIS [None]
  - ABDOMINAL PAIN UPPER [None]
  - PYREXIA [None]
  - CHOLECYSTITIS ACUTE [None]
